FAERS Safety Report 9197154 (Version 3)
Quarter: 2013Q2

REPORT INFORMATION
  Report Type: Report from Study
  Country: US (occurrence: US)
  Receive Date: 20130328
  Receipt Date: 20130424
  Transmission Date: 20140414
  Serious: Yes (Death)
  Sender: FDA-Public Use
  Company Number: US-ROCHE-1207614

PATIENT
  Sex: Male

DRUGS (1)
  1. XELODA [Suspect]
     Indication: METASTATIC NEOPLASM
     Dosage: 14 DAYS ON, 7 DAYS OFF. 500 MG BD 150 MG BD.
     Route: 065

REACTIONS (2)
  - Renal failure [Fatal]
  - Disease progression [Fatal]
